FAERS Safety Report 14784583 (Version 1)
Quarter: 2018Q2

REPORT INFORMATION
  Report Type: Spontaneous
  Country: FR (occurrence: FR)
  Receive Date: 20180420
  Receipt Date: 20180420
  Transmission Date: 20180711
  Serious: Yes (Death, Life-Threatening)
  Sender: FDA-Public Use
  Company Number: FR-PFIZER INC-2018162252

PATIENT
  Age: 68 Year
  Sex: Male

DRUGS (3)
  1. ATRACURIUM BESILATE [Suspect]
     Active Substance: ATRACURIUM BESYLATE
     Indication: ANAESTHESIA
     Dosage: 40 MG, UNK
     Route: 042
     Dates: start: 20180223, end: 20180223
  2. DIPRIVAN [Suspect]
     Active Substance: PROPOFOL
     Indication: ANAESTHESIA
     Dosage: 7 UG, UNK
     Route: 042
     Dates: start: 20180223, end: 20180223
  3. SUFENTANIL [Suspect]
     Active Substance: SUFENTANIL
     Indication: ANAESTHESIA
     Dosage: 15 UG, UNK
     Route: 042
     Dates: start: 20180223, end: 20180223

REACTIONS (2)
  - Ventricular fibrillation [Fatal]
  - Shock [Fatal]

NARRATIVE: CASE EVENT DATE: 20180223
